FAERS Safety Report 10997867 (Version 1)
Quarter: 2015Q2

REPORT INFORMATION
  Report Type: Spontaneous
  Country: US (occurrence: US)
  Receive Date: 20150408
  Receipt Date: 20150408
  Transmission Date: 20150821
  Serious: No
  Sender: FDA-Public Use
  Company Number: US-BANPHARM-20143234

PATIENT
  Sex: Female

DRUGS (3)
  1. ALEVE [Suspect]
     Active Substance: NAPROXEN SODIUM
     Route: 048
  2. ASPIRIN BAYER [Suspect]
     Active Substance: ASPIRIN
  3. 7 UNKNOWN MEDICATIONS [Concomitant]

REACTIONS (1)
  - Musculoskeletal stiffness [Unknown]
